FAERS Safety Report 5974802-4 (Version None)
Quarter: 2008Q4

REPORT INFORMATION
  Report Type: 
  Country: None (occurrence: None)
  Receive Date: 20081201
  Receipt Date: 20081126
  Transmission Date: 20090506
  Serious: Yes (Hospitalization, Other)
  Sender: FDA-Public Use
  Company Number: JP-PFIZER INC-2008100487

PATIENT
  Age: 29 Year
  Sex: Male

DRUGS (5)
  1. SULFASALAZINE [Suspect]
     Indication: COLITIS ULCERATIVE
     Dosage: DAILY DOSE:6GRAM
     Route: 048
     Dates: start: 20080410, end: 20080502
  2. MESALAMINE [Concomitant]
     Route: 048
     Dates: start: 20080318, end: 20080506
  3. MESALAMINE [Concomitant]
     Route: 042
     Dates: start: 20080410, end: 20080505
  4. MESALAMINE [Concomitant]
     Route: 048
     Dates: start: 20080425, end: 20080430
  5. OTHER COLD COMBINATION PREPARATIONS [Concomitant]

REACTIONS (4)
  - DRUG RASH WITH EOSINOPHILIA AND SYSTEMIC SYMPTOMS [None]
  - HEPATIC ENZYME INCREASED [None]
  - HUMAN HERPESVIRUS 6 INFECTION [None]
  - LYMPHOCYTE STIMULATION TEST POSITIVE [None]
